FAERS Safety Report 9281066 (Version 1)
Quarter: 2013Q2

REPORT INFORMATION
  Report Type: Spontaneous
  Country: US (occurrence: None)
  Receive Date: 20130508
  Receipt Date: 20130508
  Transmission Date: 20140414
  Serious: Yes (Disabling)
  Sender: FDA-Public Use
  Company Number: None

PATIENT
  Age: 82 Year
  Sex: Female
  Weight: 47.63 kg

DRUGS (2)
  1. AMLODIPINE [Suspect]
     Indication: DRUG THERAPY
     Dosage: 1 TABLET
     Dates: start: 20120718
  2. AMLODIPINE [Suspect]
     Indication: CARDIAC FUNCTION TEST
     Dosage: 1 TABLET
     Dates: start: 20120718

REACTIONS (1)
  - No adverse event [None]
